FAERS Safety Report 9105186 (Version 1)
Quarter: 2013Q1

REPORT INFORMATION
  Report Type: Spontaneous
  Country: CA (occurrence: CA)
  Receive Date: 20130220
  Receipt Date: 20130220
  Transmission Date: 20140127
  Serious: Yes (Other)
  Sender: FDA-Public Use
  Company Number: CA-BAYER-2013-021601

PATIENT
  Sex: Female

DRUGS (2)
  1. BETASERON [Suspect]
  2. TRILEPTAL [Suspect]

REACTIONS (4)
  - Drug ineffective [None]
  - Fatigue [None]
  - Multiple sclerosis relapse [None]
  - Paralysis [None]
